FAERS Safety Report 11069314 (Version 2)
Quarter: 2015Q2

REPORT INFORMATION
  Report Type: Report from Study
  Country: US (occurrence: US)
  Receive Date: 20150427
  Receipt Date: 20150505
  Transmission Date: 20150821
  Serious: Yes (Hospitalization, Other)
  Sender: FDA-Public Use
  Company Number: US-ABBVIE-15K-163-1379093-00

PATIENT
  Age: 15 Year
  Sex: Female
  Weight: 56.75 kg

DRUGS (2)
  1. HUMIRA [Suspect]
     Active Substance: ADALIMUMAB
     Indication: CROHN^S DISEASE
     Route: 065
     Dates: start: 20141121, end: 201504
  2. HUMIRA [Suspect]
     Active Substance: ADALIMUMAB
     Route: 065
     Dates: start: 20150415

REACTIONS (17)
  - Lyme disease [Recovered/Resolved]
  - Arthralgia [Recovering/Resolving]
  - Spinal osteoarthritis [Recovered/Resolved]
  - Iron deficiency anaemia [Recovered/Resolved]
  - Haematochezia [Recovered/Resolved]
  - Epistaxis [Not Recovered/Not Resolved]
  - Pancreatitis [Recovered/Resolved]
  - Clostridium difficile infection [Recovered/Resolved]
  - Oropharyngeal pain [Not Recovered/Not Resolved]
  - Nasal congestion [Not Recovered/Not Resolved]
  - Headache [Not Recovered/Not Resolved]
  - Pain in extremity [Recovered/Resolved]
  - Nasopharyngitis [Not Recovered/Not Resolved]
  - Alopecia [Recovered/Resolved]
  - Pyrexia [Recovered/Resolved]
  - Rhinorrhoea [Not Recovered/Not Resolved]
  - Crohn^s disease [Unknown]

NARRATIVE: CASE EVENT DATE: 201501
